FAERS Safety Report 7933787-1 (Version None)
Quarter: 2011Q4

REPORT INFORMATION
  Report Type: 
  Country: None (occurrence: None)
  Receive Date: 20111122
  Receipt Date: 20111115
  Transmission Date: 20120403
  Serious: Yes (Death, Hospitalization, Other)
  Sender: FDA-Public Use
  Company Number: DE-GENZYME-CLOF-1001872

PATIENT
  Sex: Female
  Weight: 52 kg

DRUGS (8)
  1. EVOLTRA [Suspect]
     Indication: BONE MARROW CONDITIONING REGIMEN
  2. BUSULFAN [Suspect]
     Indication: ACUTE MYELOID LEUKAEMIA
     Dosage: UNK
     Route: 065
  3. CYTARABINE [Suspect]
     Indication: ACUTE MYELOID LEUKAEMIA
     Dosage: 1570 MG, QDX5
     Route: 042
     Dates: start: 20111014, end: 20111018
  4. EVOLTRA [Suspect]
     Indication: ACUTE MYELOID LEUKAEMIA
     Dosage: 47 MG, QDX5
     Route: 042
     Dates: start: 20111014, end: 20111018
  5. CYCLOPHOSPHAMIDE [Suspect]
     Indication: BONE MARROW CONDITIONING REGIMEN
  6. BUSULFAN [Suspect]
     Indication: BONE MARROW CONDITIONING REGIMEN
  7. CYTARABINE [Suspect]
     Indication: BONE MARROW CONDITIONING REGIMEN
  8. CYCLOPHOSPHAMIDE [Suspect]
     Indication: ACUTE MYELOID LEUKAEMIA
     Dosage: UNK
     Route: 065

REACTIONS (5)
  - TUMOUR LYSIS SYNDROME [None]
  - HYPOTENSION [None]
  - MULTI-ORGAN FAILURE [None]
  - CAPILLARY LEAK SYNDROME [None]
  - ACUTE MYELOID LEUKAEMIA [None]
